FAERS Safety Report 9280759 (Version 1)
Quarter: 2013Q2

REPORT INFORMATION
  Report Type: Spontaneous
  Country: US (occurrence: US)
  Receive Date: 20130509
  Receipt Date: 20130509
  Transmission Date: 20140414
  Serious: No
  Sender: FDA-Public Use
  Company Number: US-PFIZER INC-2013141481

PATIENT
  Age: 61 Year
  Sex: Male
  Weight: 72.56 kg

DRUGS (5)
  1. NICOTROL INHALER [Suspect]
     Indication: SMOKING CESSATION THERAPY
     Dosage: 10 MG, UNK
     Dates: start: 20130506
  2. ABILIFY [Concomitant]
     Indication: MENTAL DISORDER
     Dosage: 50 MG, 1X/DAY
     Route: 048
  3. ABILIFY [Concomitant]
     Indication: BIPOLAR DISORDER
  4. VISTARIL [Concomitant]
     Dosage: 25 MG, 1X/DAY
  5. VIIBRYD [Concomitant]
     Dosage: 20 MG, 1X/DAY

REACTIONS (1)
  - Cough [Unknown]
